FAERS Safety Report 6158180-6 (Version None)
Quarter: 2009Q2

REPORT INFORMATION
  Report Type: 
  Country: None (occurrence: None)
  Receive Date: 20090417
  Receipt Date: 20080710
  Transmission Date: 20091009
  Serious: No
  Sender: FDA-Public Use
  Company Number: US-AMGEN-US293789

PATIENT
  Sex: Female

DRUGS (2)
  1. SENSIPAR [Suspect]
     Indication: PARATHYROID TUMOUR MALIGNANT
     Route: 065
  2. FOSAMAX [Concomitant]
     Route: 065

REACTIONS (7)
  - BLOOD CALCIUM INCREASED [None]
  - BLOOD PARATHYROID HORMONE INCREASED [None]
  - FATIGUE [None]
  - PARATHYROID DISORDER [None]
  - SLUGGISHNESS [None]
  - VOMITING [None]
  - WEIGHT DECREASED [None]
